FAERS Safety Report 6888813-8 (Version None)
Quarter: 2010Q3

REPORT INFORMATION
  Report Type: 
  Country: None (occurrence: None)
  Receive Date: 20100730
  Receipt Date: 20071114
  Transmission Date: 20110219
  Serious: Yes (Other)
  Sender: FDA-Public Use
  Company Number: US-PFIZER INC-2007085373

PATIENT
  Sex: Female
  Weight: 89.8 kg

DRUGS (8)
  1. LIPITOR [Suspect]
     Indication: CEREBROVASCULAR ACCIDENT
     Route: 048
     Dates: start: 20070801, end: 20071002
  2. AGGRENOX [Concomitant]
     Dates: start: 20070801
  3. CARDIOVASCULAR SYSTEM DRUGS [Concomitant]
     Dates: start: 20070101
  4. ATENOLOL [Concomitant]
  5. CHLORTHALIDONE [Concomitant]
  6. LISINOPRIL [Concomitant]
  7. DARVOCET [Concomitant]
  8. TRAMADOL HYDROCHLORIDE [Concomitant]

REACTIONS (3)
  - ARTHRALGIA [None]
  - MYALGIA [None]
  - MYOSITIS [None]
